FAERS Safety Report 18879639 (Version 1)
Quarter: 2021Q1

REPORT INFORMATION
  Report Type: Spontaneous
  Country: MX (occurrence: MX)
  Receive Date: 20210211
  Receipt Date: 20210211
  Transmission Date: 20210420
  Serious: Yes (Death, Other)
  Sender: FDA-Public Use
  Company Number: MX-009507513-2102MEX002372

PATIENT
  Age: 64 Year
  Sex: Male

DRUGS (2)
  1. IMIPENEM AND CILASTATIN [Suspect]
     Active Substance: CILASTATIN SODIUM\IMIPENEM
     Indication: PNEUMONIA
  2. IMIPENEM AND CILASTATIN [Suspect]
     Active Substance: CILASTATIN SODIUM\IMIPENEM
     Indication: ACUTE RESPIRATORY DISTRESS SYNDROME

REACTIONS (2)
  - Septic shock [Fatal]
  - Therapy non-responder [Fatal]
